FAERS Safety Report 7471528-5 (Version None)
Quarter: 2011Q2

REPORT INFORMATION
  Report Type: 
  Country: None (occurrence: None)
  Receive Date: 20110502
  Receipt Date: 20110418
  Transmission Date: 20111010
  Serious: Yes (Hospitalization)
  Sender: FDA-Public Use
  Company Number: 2011SP017446

PATIENT
  Age: 64 Year
  Sex: Male

DRUGS (2)
  1. TEMODAL [Suspect]
     Indication: ASTROCYTOMA
     Dosage: 300 MG;QD;PO
     Route: 048
     Dates: start: 20101008, end: 20101019
  2. HEPARIN [Suspect]
     Indication: DEEP VEIN THROMBOSIS
     Dosage: ;SC
     Route: 058
     Dates: start: 20101017, end: 20101019

REACTIONS (9)
  - DEEP VEIN THROMBOSIS [None]
  - INTRACRANIAL TUMOUR HAEMORRHAGE [None]
  - THROMBOCYTOPENIA [None]
  - CONDITION AGGRAVATED [None]
  - CEREBRAL HAEMORRHAGE [None]
  - HEMIPLEGIA [None]
  - APHASIA [None]
  - ASTROCYTOMA [None]
  - NEOPLASM PROGRESSION [None]
